FAERS Safety Report 10161967 (Version 1)
Quarter: 2014Q2

REPORT INFORMATION
  Report Type: Spontaneous
  Country: US (occurrence: None)
  Receive Date: 20140507
  Receipt Date: 20140507
  Transmission Date: 20141212
  Serious: Yes (Other)
  Sender: FDA-Public Use
  Company Number: AUR-APL-2014-05346

PATIENT
  Age: 54 Year
  Sex: Female

DRUGS (8)
  1. CIPROFLOXACIN [Suspect]
     Indication: PRODUCT USED FOR UNKNOWN INDICATION
  2. AMPICILLIN (AMPICILLIN) [Suspect]
     Indication: PRODUCT USED FOR UNKNOWN INDICATION
  3. TRIMETHOPRIM+SULFAMETHOXAZOLE [Suspect]
     Indication: PRODUCT USED FOR UNKNOWN INDICATION
  4. SULFISOXAZOLE [Suspect]
     Indication: PRODUCT USED FOR UNKNOWN INDICATION
  5. GENTAMICIN (GENTAMICIN) [Suspect]
     Indication: PRODUCT USED FOR UNKNOWN INDICATION
  6. NALIDIXIC ACID [Suspect]
     Indication: PRODUCT USED FOR UNKNOWN INDICATION
  7. STREPTOMYCIN [Suspect]
     Indication: PRODUCT USED FOR UNKNOWN INDICATION
  8. TETRACYCLINE (TETRACYCLINE) [Suspect]
     Indication: PRODUCT USED FOR UNKNOWN INDICATION

REACTIONS (1)
  - Pathogen resistance [None]
